FAERS Safety Report 4551565-0 (Version None)
Quarter: 2005Q1

REPORT INFORMATION
  Report Type: 
  Country: None (occurrence: None)
  Receive Date: 20050111
  Receipt Date: 20050103
  Transmission Date: 20050727
  Serious: Yes (Hospitalization)
  Sender: FDA-Public Use
  Company Number: 163-20785-0410285

PATIENT
  Age: 70 Year
  Sex: Male

DRUGS (9)
  1. THALOMID [Suspect]
     Indication: MULTIPLE MYELOMA
     Dosage: SEE IMAGE
     Route: 048
     Dates: start: 20040419, end: 20040901
  2. THALOMID [Suspect]
     Indication: MULTIPLE MYELOMA
     Dosage: SEE IMAGE
     Route: 048
     Dates: start: 20040901, end: 20041021
  3. TOPROL(METOPROLOL SUCCINATE) [Concomitant]
  4. INSULIN [Concomitant]
  5. NITROGLYCERIN [Concomitant]
  6. ACYCLOVIR [Concomitant]
  7. ASPIRIN [Concomitant]
  8. BUMEX [Concomitant]
  9. NEPHROVITE  (NEPHRO-VITE RX) [Concomitant]

REACTIONS (17)
  - APHAGIA [None]
  - APHASIA [None]
  - CHEST DISCOMFORT [None]
  - CHEST PAIN [None]
  - CHEST WALL PAIN [None]
  - DECREASED APPETITE [None]
  - DRY EYE [None]
  - DYSAESTHESIA [None]
  - EAR PAIN [None]
  - FACIAL PALSY [None]
  - FACIAL PARESIS [None]
  - FATIGUE [None]
  - MOUTH INJURY [None]
  - NEUROPATHY PERIPHERAL [None]
  - RED BLOOD CELLS URINE POSITIVE [None]
  - SINUSITIS [None]
  - TINNITUS [None]
